FAERS Safety Report 26040382 (Version 1)
Quarter: 2025Q4

REPORT INFORMATION
  Report Type: Report from Study
  Country: CO (occurrence: CO)
  Receive Date: 20251113
  Receipt Date: 20251113
  Transmission Date: 20260118
  Serious: Yes (Other)
  Sender: ALEXION PHARMACEUTICALS
  Company Number: CO-AstraZeneca-CH-00989607A

PATIENT
  Age: 49 Year
  Sex: Female

DRUGS (1)
  1. SODIUM ZIRCONIUM CYCLOSILICATE [Suspect]
     Active Substance: SODIUM ZIRCONIUM CYCLOSILICATE
     Indication: Hyperkalaemia
     Dosage: 5 GRAM, QD
     Dates: start: 20250910

REACTIONS (6)
  - Headache [Unknown]
  - Abdominal pain upper [Unknown]
  - Vomiting [Unknown]
  - Hypoaesthesia [Unknown]
  - Cardiac failure [Recovered/Resolved]
  - Haematemesis [Recovered/Resolved]

NARRATIVE: CASE EVENT DATE: 20251030
